FAERS Safety Report 24042314 (Version 2)
Quarter: 2024Q3

REPORT INFORMATION
  Report Type: Spontaneous
  Country: FR (occurrence: FR)
  Receive Date: 20240702
  Receipt Date: 20240710
  Transmission Date: 20241017
  Serious: No
  Sender: SANDOZ
  Company Number: FR-SANDOZ-SDZ2024FR061975

PATIENT
  Age: 8 Year
  Sex: Male

DRUGS (2)
  1. OMNITROPE [Suspect]
     Active Substance: SOMATROPIN
     Indication: Growth hormone deficiency
     Dosage: 0.7MG/D FOR 3 WEEKS (EVENING INJECTION)
     Route: 065
  2. OMNITROPE [Suspect]
     Active Substance: SOMATROPIN
     Dosage: 10 MG
     Route: 065

REACTIONS (4)
  - Drug dose omission by device [Unknown]
  - Device delivery system issue [Unknown]
  - Device issue [Unknown]
  - Product storage error [Unknown]

NARRATIVE: CASE EVENT DATE: 20240626
